FAERS Safety Report 10060143 (Version 2)
Quarter: 2014Q2

REPORT INFORMATION
  Report Type: Report from Study
  Country: US (occurrence: US)
  Receive Date: 20140404
  Receipt Date: 20140428
  Transmission Date: 20141212
  Serious: Yes (Hospitalization, Disabling, Other)
  Sender: FDA-Public Use
  Company Number: PHEH2014US006232

PATIENT
  Sex: Male

DRUGS (6)
  1. DIOVAN [Suspect]
     Dosage: 320 MG, UNK
  2. TRAMADOL [Suspect]
     Indication: PAIN
     Dosage: UNK UKN, UNK
  3. LORAZEPAM [Suspect]
     Indication: ANXIETY
     Dosage: 2 MG, UNK
  4. CYMBALTA [Suspect]
     Dosage: UNK UKN, UNK
  5. CARVEDILOL [Concomitant]
     Dosage: 1 DF, (25 MG)
  6. CRESTOR [Concomitant]
     Dosage: 1 DF, (40 MG)

REACTIONS (18)
  - Coma [Unknown]
  - Loss of consciousness [Unknown]
  - Memory impairment [Unknown]
  - Speech disorder [Unknown]
  - Mobility decreased [Unknown]
  - Pain [Unknown]
  - Convulsion [Unknown]
  - Parkinson^s disease [Unknown]
  - Serotonin syndrome [Unknown]
  - Balance disorder [Unknown]
  - Fall [Unknown]
  - Diabetic neuropathy [Unknown]
  - Diabetes mellitus [Unknown]
  - Sleep disorder [Unknown]
  - Tremor [Unknown]
  - Weight decreased [Unknown]
  - Depression [Unknown]
  - Decubitus ulcer [Unknown]
